FAERS Safety Report 7757398 (Version 4)
Quarter: 2013Q4

REPORT INFORMATION
  Report Type: Spontaneous
  Country: US (occurrence: US)
  Receive Date: 20110112
  Receipt Date: 20131128
  Transmission Date: 20140711
  Serious: No
  Sender: FDA-Public Use
  Company Number: US-JNJFOC-20110102710

PATIENT
  Age: 54 Year
  Sex: Female

DRUGS (1)
  1. FENTANYL TRANSDERMAL SYSTEM [Suspect]
     Indication: BACK PAIN
     Route: 062
     Dates: start: 2010

REACTIONS (5)
  - Diarrhoea [Not Recovered/Not Resolved]
  - Poor quality drug administered [Not Recovered/Not Resolved]
  - Decreased appetite [Unknown]
  - Pain [Unknown]
  - Product physical issue [Unknown]
